FAERS Safety Report 21643929 (Version 2)
Quarter: 2022Q4

REPORT INFORMATION
  Report Type: Spontaneous
  Country: US (occurrence: US)
  Receive Date: 20221125
  Receipt Date: 20221216
  Transmission Date: 20230113
  Serious: Yes (Death, Other)
  Sender: FDA-Public Use
  Company Number: US-MALLINCKRODT-T202206233

PATIENT

DRUGS (1)
  1. INOMAX [Suspect]
     Active Substance: NITRIC OXIDE
     Indication: Product used for unknown indication
     Dosage: 40 PPM (INHALATION)
     Route: 055

REACTIONS (4)
  - Illness [Fatal]
  - Acute respiratory failure [Recovered/Resolved]
  - Device failure [Unknown]
  - Product use issue [Unknown]

NARRATIVE: CASE EVENT DATE: 20221210
